FAERS Safety Report 19036541 (Version 2)
Quarter: 2021Q2

REPORT INFORMATION
  Report Type: Report from Study
  Country: None (occurrence: US)
  Receive Date: 20210322
  Receipt Date: 20210408
  Transmission Date: 20210717
  Serious: Yes (Other)
  Sender: FDA-Public Use
  Company Number: US-ABBVIE-21K-163-3820723-00

PATIENT
  Age: 64 Year
  Sex: Male
  Weight: 90.8 kg

DRUGS (8)
  1. ASPIRIN. [Concomitant]
     Active Substance: ASPIRIN
     Indication: CARDIAC DISORDER
  2. DIAZEPAM. [Concomitant]
     Active Substance: DIAZEPAM
     Indication: MUSCLE RELAXANT THERAPY
  3. PFIZER?BIONTECH COVID?19 VACCINE [Suspect]
     Active Substance: TOZINAMERAN
     Dosage: PFIZER
     Route: 030
     Dates: start: 202103, end: 202103
  4. HUMIRA [Suspect]
     Active Substance: ADALIMUMAB
     Indication: COLITIS ULCERATIVE
     Dosage: CITRATE FREE
     Route: 058
     Dates: start: 2020
  5. LISINOPRIL. [Concomitant]
     Active Substance: LISINOPRIL
     Indication: HYPERTENSION
  6. DIAZEPAM. [Concomitant]
     Active Substance: DIAZEPAM
     Indication: PAIN
  7. PFIZER?BIONTECH COVID?19 VACCINE [Suspect]
     Active Substance: TOZINAMERAN
     Indication: COVID-19 IMMUNISATION
     Dosage: PFIZER
     Route: 030
     Dates: start: 202103, end: 202103
  8. HYDROCODEINE [Concomitant]
     Active Substance: DIHYDROCODEINE PHOSPHATE
     Indication: PAIN

REACTIONS (11)
  - Productive cough [Recovered/Resolved]
  - Arthralgia [Recovering/Resolving]
  - Gait disturbance [Unknown]
  - Dysphagia [Recovered/Resolved]
  - Throat irritation [Recovered/Resolved]
  - COVID-19 [Recovered/Resolved]
  - Immune system disorder [Recovered/Resolved]
  - Pain [Recovered/Resolved]
  - Arthralgia [Unknown]
  - Illness [Recovered/Resolved]
  - Pharyngeal swelling [Recovered/Resolved]

NARRATIVE: CASE EVENT DATE: 202012
